FAERS Safety Report 13460647 (Version 1)
Quarter: 2017Q2

REPORT INFORMATION
  Report Type: Spontaneous
  Country: US (occurrence: US)
  Receive Date: 20170420
  Receipt Date: 20170420
  Transmission Date: 20170830
  Serious: Yes (Death, Other)
  Sender: FDA-Public Use
  Company Number: US-ENDO PHARMACEUTICALS INC-2017-001809

PATIENT
  Age: 70 Year
  Sex: Female

DRUGS (1)
  1. ADRENALIN [Suspect]
     Active Substance: EPINEPHRINE
     Indication: PRODUCT USED FOR UNKNOWN INDICATION
     Dosage: 30 ML, SINGLE
     Route: 030

REACTIONS (8)
  - Bradycardia [Unknown]
  - Sinus tachycardia [Unknown]
  - Ventricular fibrillation [Unknown]
  - Toxicity to various agents [Fatal]
  - Wrong drug administered [Fatal]
  - Acute pulmonary oedema [Unknown]
  - Ventricular tachycardia [Unknown]
  - Pulseless electrical activity [Fatal]
